FAERS Safety Report 23550397 (Version 2)
Quarter: 2024Q1

REPORT INFORMATION
  Report Type: Spontaneous
  Country: US (occurrence: US)
  Receive Date: 20240221
  Receipt Date: 20240320
  Transmission Date: 20240410
  Serious: Yes (Hospitalization, Other)
  Sender: FDA-Public Use
  Company Number: US-INCYTE CORPORATION-2024IN001868

PATIENT

DRUGS (5)
  1. JAKAFI [Suspect]
     Active Substance: RUXOLITINIB
     Indication: B-cell type acute leukaemia
     Dosage: 120 MILLIGRAM, EVERY 24 HOURS
     Route: 048
     Dates: start: 20231122, end: 20231207
  2. JAKAFI [Suspect]
     Active Substance: RUXOLITINIB
     Dosage: 120 MILLIGRAM, EVERY 24 HOURS
     Route: 048
     Dates: start: 20240228
  3. CYCLOPHOSPHAMIDE [Suspect]
     Active Substance: CYCLOPHOSPHAMIDE
     Indication: B-cell type acute leukaemia
     Route: 065
  4. FLUDARABINE [Suspect]
     Active Substance: FLUDARABINE PHOSPHATE
     Indication: B-cell type acute leukaemia
     Route: 065
  5. KYMRIAH [Suspect]
     Active Substance: TISAGENLECLEUCEL
     Indication: B-cell type acute leukaemia
     Dosage: ONE TIME
     Route: 042
     Dates: start: 20231215

REACTIONS (7)
  - B-cell type acute leukaemia [Unknown]
  - Immunodeficiency [Unknown]
  - Wound infection pseudomonas [Recovered/Resolved]
  - Influenza [Recovered/Resolved]
  - Disease recurrence [Unknown]
  - Prescribed overdose [Unknown]
  - Off label use [Unknown]

NARRATIVE: CASE EVENT DATE: 20231122
